FAERS Safety Report 17674131 (Version 1)
Quarter: 2020Q2

REPORT INFORMATION
  Report Type: Report from Study
  Country: ES (occurrence: ES)
  Receive Date: 20200416
  Receipt Date: 20200416
  Transmission Date: 20200714
  Serious: Yes (Death)
  Sender: FDA-Public Use
  Company Number: ES-BAXTER-2020BAX008219

PATIENT

DRUGS (1)
  1. DOXIL [Suspect]
     Active Substance: DOXORUBICIN HYDROCHLORIDE
     Indication: BREAST CANCER
     Dosage: MEAN DOSE OF DOXORUBICIN USED IN THE STUDY WAS 243.53 MG /M2
     Route: 065

REACTIONS (1)
  - Cardiotoxicity [Fatal]
